FAERS Safety Report 4677409-4 (Version None)
Quarter: 2005Q2

REPORT INFORMATION
  Report Type: 
  Country: None (occurrence: None)
  Receive Date: 20050527
  Receipt Date: 20050527
  Transmission Date: 20051028
  Serious: Yes (Death, Hospitalization)
  Sender: FDA-Public Use
  Company Number: None

PATIENT
  Age: 69 Year
  Sex: Male
  Weight: 143.7903 kg

DRUGS (2)
  1. MORPHINE [Suspect]
     Indication: PAIN
     Dosage: 15MG BID ORAL
     Route: 048
     Dates: start: 20050413, end: 20050420
  2. VALIUM [Suspect]
     Indication: AGITATION
     Dosage: 5MG BID ORAL
     Route: 048
     Dates: start: 20050415, end: 20050415

REACTIONS (2)
  - HYPOXIA [None]
  - INCORRECT DOSE ADMINISTERED [None]
